FAERS Safety Report 22348403 (Version 1)
Quarter: 2023Q2

REPORT INFORMATION
  Report Type: Report from Study
  Country: US (occurrence: US)
  Receive Date: 20230522
  Receipt Date: 20230522
  Transmission Date: 20230722
  Serious: No
  Sender: FDA-Public Use
  Company Number: US-002147023-NVSC2023US114220

PATIENT
  Sex: Male
  Weight: 86.18 kg

DRUGS (6)
  1. COSENTYX [Suspect]
     Active Substance: SECUKINUMAB
     Indication: Psoriasis
     Dosage: 300 MG
     Route: 058
  2. COSENTYX [Suspect]
     Active Substance: SECUKINUMAB
     Indication: Dermatitis
  3. COSENTYX [Suspect]
     Active Substance: SECUKINUMAB
     Indication: Eczema
  4. TRIAMCINOLONE [Suspect]
     Active Substance: TRIAMCINOLONE
     Indication: Psoriasis
     Dosage: 0.1 %
     Route: 065
  5. TRIAMCINOLONE [Suspect]
     Active Substance: TRIAMCINOLONE
     Indication: Dermatitis
  6. TRIAMCINOLONE [Suspect]
     Active Substance: TRIAMCINOLONE
     Indication: Eczema

REACTIONS (7)
  - Skin lesion [Unknown]
  - Skin irritation [Unknown]
  - Seborrhoeic dermatitis [Unknown]
  - Pain of skin [Unknown]
  - Papule [Unknown]
  - Acrochordon [Unknown]
  - Psoriasis [Unknown]
